FAERS Safety Report 6692335-7 (Version None)
Quarter: 2010Q2

REPORT INFORMATION
  Report Type: 
  Country: None (occurrence: None)
  Receive Date: 20100419
  Receipt Date: 20090813
  Transmission Date: 20101027
  Serious: Yes (Other)
  Sender: FDA-Public Use
  Company Number: LMI-2009-00209

PATIENT
  Age: 68 Year
  Sex: Female
  Weight: 99.3377 kg

DRUGS (10)
  1. DEFINITY [Suspect]
     Indication: ECHOCARDIOGRAM
     Dosage: SEE IMAGE
     Route: 042
     Dates: start: 20090813, end: 20090813
  2. DEFINITY [Suspect]
     Indication: RIGHT VENTRICULAR DYSFUNCTION
     Dosage: SEE IMAGE
     Route: 042
     Dates: start: 20090813, end: 20090813
  3. DEFINITY [Suspect]
     Indication: ECHOCARDIOGRAM
     Dosage: SEE IMAGE
     Route: 042
     Dates: start: 20090813, end: 20090813
  4. DEFINITY [Suspect]
     Indication: RIGHT VENTRICULAR DYSFUNCTION
     Dosage: SEE IMAGE
     Route: 042
     Dates: start: 20090813, end: 20090813
  5. COUMADIN [Concomitant]
  6. LEVOTHYROXINE SODIUM [Concomitant]
  7. LASIX [Concomitant]
  8. ASPIRIN [Concomitant]
  9. CARVEDILOL [Concomitant]
  10. TYLENOL #3 (CODEINE PHOSPHATE, PARACETAMOL) [Concomitant]

REACTIONS (10)
  - BACK PAIN [None]
  - BACTERIAL TEST POSITIVE [None]
  - BLOOD PRESSURE DIASTOLIC DECREASED [None]
  - FLANK PAIN [None]
  - FLUSHING [None]
  - INFUSION SITE URTICARIA [None]
  - MALAISE [None]
  - NAUSEA [None]
  - SOMNOLENCE [None]
  - URTICARIA [None]
